FAERS Safety Report 16306538 (Version 1)
Quarter: 2019Q2

REPORT INFORMATION
  Report Type: Spontaneous
  Country: US (occurrence: US)
  Receive Date: 20190513
  Receipt Date: 20190513
  Transmission Date: 20190711
  Serious: Yes (Other)
  Sender: FDA-Public Use
  Company Number: US-MYLANLABS-2019M1045237

PATIENT
  Age: 27 Year
  Sex: Male

DRUGS (4)
  1. PREDNISOLONE. [Suspect]
     Active Substance: PREDNISOLONE
     Indication: INFLAMMATION
     Dosage: FOUR TIMES A DAY
     Route: 061
  2. POLYMYXIN B SULFATE AND TRIMETHOPRI/00640701/ [Concomitant]
     Indication: KERATITIS BACTERIAL
     Route: 065
  3. MOXIFLOXACIN. [Concomitant]
     Active Substance: MOXIFLOXACIN
     Indication: KERATITIS BACTERIAL
     Route: 065
  4. ERYTHROMYCIN. [Concomitant]
     Active Substance: ERYTHROMYCIN
     Indication: KERATITIS BACTERIAL
     Route: 065

REACTIONS (3)
  - Keratitis bacterial [Recovered/Resolved]
  - Corneal scar [Unknown]
  - Condition aggravated [Recovered/Resolved]

NARRATIVE: CASE EVENT DATE: 2015
